FAERS Safety Report 9972538 (Version 1)
Quarter: 2014Q1

REPORT INFORMATION
  Report Type: Report from Study
  Country: US (occurrence: US)
  Receive Date: 20140306
  Receipt Date: 20140306
  Transmission Date: 20141002
  Serious: No
  Sender: FDA-Public Use
  Company Number: US-ABBVIE-13P-163-1154027-00

PATIENT
  Age: 43 Year
  Sex: Female

DRUGS (3)
  1. HUMIRA [Suspect]
     Indication: PSORIASIS
     Dates: start: 20130710
  2. REQUIP [Concomitant]
     Indication: RESTLESS LEGS SYNDROME
     Dosage: AT BEDTIME
  3. LISINOPRIL [Concomitant]
     Indication: HYPERTENSION

REACTIONS (3)
  - Death of relative [Not Recovered/Not Resolved]
  - Drug ineffective [Not Recovered/Not Resolved]
  - Depression [Not Recovered/Not Resolved]
